FAERS Safety Report 9691610 (Version 1)
Quarter: 2013Q4

REPORT INFORMATION
  Report Type: Spontaneous
  Country: US (occurrence: US)
  Receive Date: 20131115
  Receipt Date: 20131115
  Transmission Date: 20140711
  Serious: Yes (Hospitalization, Other)
  Sender: FDA-Public Use
  Company Number: PHHY2013US129730

PATIENT
  Age: 31 Year
  Sex: Male

DRUGS (1)
  1. METFORMIN [Suspect]
     Dosage: 50 G, UNK

REACTIONS (10)
  - Renal impairment [Unknown]
  - Blood creatinine increased [Unknown]
  - Hypoglycaemia [Recovering/Resolving]
  - Somnolence [Unknown]
  - Lactic acidosis [Recovering/Resolving]
  - Blood bicarbonate decreased [Unknown]
  - Drug level increased [Unknown]
  - Overdose [Unknown]
  - Blood insulin decreased [Unknown]
  - Blood pressure diastolic decreased [Unknown]
